FAERS Safety Report 21744477 (Version 1)
Quarter: 2022Q4

REPORT INFORMATION
  Report Type: Report from Study
  Country: US (occurrence: US)
  Receive Date: 20221218
  Receipt Date: 20221218
  Transmission Date: 20230113
  Serious: No
  Sender: FDA-Public Use
  Company Number: US-ABBVIE-4195447

PATIENT
  Sex: Male

DRUGS (1)
  1. SKYRIZI [Suspect]
     Active Substance: RISANKIZUMAB-RZAA
     Indication: Psoriasis
     Dosage: SKYRIZI START DATE- 06 AUG 2022; FORM STRENGTH- 150 MG; DOSE: 150MG/ML PEN SQ AT WEEK 0, WEEK 4, ...
     Route: 058

REACTIONS (1)
  - Nasal congestion [Unknown]

NARRATIVE: CASE EVENT DATE: 20220101
